FAERS Safety Report 19956570 (Version 2)
Quarter: 2021Q4

REPORT INFORMATION
  Report Type: Spontaneous
  Country: CA (occurrence: CA)
  Receive Date: 20211014
  Receipt Date: 20211022
  Transmission Date: 20220303
  Serious: Yes (Other)
  Sender: FDA-Public Use
  Company Number: CA-TEVA-2021-CA-1963855

PATIENT
  Age: 59 Year
  Sex: Male

DRUGS (2)
  1. MORPHINE [Suspect]
     Active Substance: MORPHINE
     Indication: Drug use disorder
     Dosage: 250MG SLOW RELEASE ORAL MORPHINE
     Route: 048
  2. FENTANYL [Suspect]
     Active Substance: FENTANYL
     Indication: Drug abuse
     Route: 042

REACTIONS (3)
  - Appetite disorder [Unknown]
  - Drug use disorder [Recovered/Resolved]
  - Drug abuse [Unknown]
